FAERS Safety Report 9614375 (Version 3)
Quarter: 2013Q4

REPORT INFORMATION
  Report Type: Spontaneous
  Country: US (occurrence: US)
  Receive Date: 20131011
  Receipt Date: 20131113
  Transmission Date: 20140711
  Serious: Yes (Other)
  Sender: FDA-Public Use
  Company Number: US-JNJFOC-20131003318

PATIENT
  Age: 58 Year
  Sex: Male

DRUGS (12)
  1. NUCYNTA ER [Suspect]
     Indication: PAIN
     Dosage: TWO PER DAY
     Route: 048
     Dates: start: 20131003
  2. NUCYNTA ER [Suspect]
     Indication: PAIN
     Dosage: TWO PER DAY
     Route: 048
     Dates: start: 201309, end: 20131003
  3. LOPRESSOR [Concomitant]
     Indication: HEART RATE
     Dosage: TWO PER DAY, 20 YEARS
     Route: 048
  4. LOPRESSOR [Concomitant]
     Indication: HEART RATE IRREGULAR
     Dosage: TWO PER DAY, 20 YEARS
     Route: 048
  5. LASIX [Concomitant]
     Indication: FLUID RETENTION
     Dosage: 2 PER DAY, 9 MONTHS
     Route: 048
     Dates: start: 201302
  6. SPIRIVA [Concomitant]
     Indication: RESPIRATORY DISORDER
     Dosage: DAILY
     Route: 055
     Dates: start: 201309
  7. ADVAIR [Concomitant]
     Indication: RESPIRATORY DISORDER
     Dosage: 2 PER DAY
     Route: 065
     Dates: start: 201309
  8. POTASSIUM CHLORIDE [Concomitant]
     Indication: NUTRITIONAL SUPPLEMENTATION
     Dosage: ONCE DAILY
     Route: 048
  9. ASPIRIN [Concomitant]
     Indication: CARDIAC DISORDER
     Dosage: DAILY
     Route: 048
  10. HYDROCODONE/ACETAMINOPHEN [Concomitant]
     Dosage: 3 YEARS
     Route: 065
  11. SALMETEROL [Concomitant]
     Route: 065
  12. MULTIVITAMINS [Concomitant]
     Route: 065

REACTIONS (11)
  - Respiratory disorder [Recovering/Resolving]
  - Heart rate increased [Recovered/Resolved]
  - Hypopnoea [Recovering/Resolving]
  - Dyspnoea [Recovering/Resolving]
  - Chest pain [Recovered/Resolved]
  - Depression [Recovering/Resolving]
  - Hypertension [Recovering/Resolving]
  - Drug ineffective [Recovered/Resolved]
  - Feeling abnormal [Recovered/Resolved]
  - Anger [Recovering/Resolving]
  - Fatigue [Recovering/Resolving]
